FAERS Safety Report 11685831 (Version 1)
Quarter: 2015Q4

REPORT INFORMATION
  Report Type: Report from Study
  Country: GB (occurrence: GB)
  Receive Date: 20151030
  Receipt Date: 20151030
  Transmission Date: 20160304
  Serious: Yes (Hospitalization)
  Sender: FDA-Public Use
  Company Number: GB-MYLANLABS-2015M1037039

PATIENT

DRUGS (3)
  1. GENTAMICIN. [Suspect]
     Active Substance: GENTAMICIN
     Indication: MEDICAL DEVICE SITE JOINT INFECTION
  2. VANCOMYCIN [Suspect]
     Active Substance: VANCOMYCIN
     Indication: MEDICAL DEVICE SITE JOINT INFECTION
  3. CALCIUM SULFATE [Suspect]
     Active Substance: CALCIUM SULFATE
     Indication: MEDICAL DEVICE SITE JOINT INFECTION
     Dosage: 40CC OF CALCIUM SULFATE POWDER [STIMULAN], AND 1G VANCOMYCIN/240MG GENTAMICIN PER 10CC, AS BEADS
     Route: 050

REACTIONS (1)
  - Hypercalcaemia [Recovered/Resolved]
